FAERS Safety Report 4642458-9 (Version None)
Quarter: 2005Q2

REPORT INFORMATION
  Report Type: 
  Country: None (occurrence: None)
  Receive Date: 20050422
  Receipt Date: 20050304
  Transmission Date: 20051028
  Serious: Yes (Other)
  Sender: FDA-Public Use
  Company Number: DE-MERCK-0503DEU00070

PATIENT
  Age: 37 Year
  Sex: Female

DRUGS (2)
  1. SINGULAIR [Suspect]
     Indication: URTICARIA
     Route: 048
     Dates: start: 20050125, end: 20050223
  2. EBASTINE [Concomitant]
     Route: 065
     Dates: start: 20041201

REACTIONS (3)
  - ABORTION INDUCED [None]
  - DRUG EXPOSURE DURING PREGNANCY [None]
  - NO ADVERSE EFFECT [None]
